FAERS Safety Report 8842995 (Version 1)
Quarter: 2012Q4

REPORT INFORMATION
  Report Type: 
  Country: US (occurrence: US)
  Receive Date: 20121016
  Receipt Date: 20121016
  Transmission Date: 20130627
  Serious: No
  Sender: FDA-Public Use
  Company Number: US-B.I. PHARMACEUTICALS,INC./RIDGEFIELD-2012-BP-24394BP

PATIENT
  Sex: Male
  Weight: 82 kg

DRUGS (2)
  1. SPIRIVA [Suspect]
     Indication: EMPHYSEMA
     Dosage: 18 mcg
     Route: 055
     Dates: start: 2008
  2. RESCUE INHALER [Concomitant]
     Indication: DYSPNOEA

REACTIONS (1)
  - Dental caries [Recovered/Resolved]
